FAERS Safety Report 9604732 (Version 2)
Quarter: 2013Q4

REPORT INFORMATION
  Report Type: Report from Study
  Country: US (occurrence: US)
  Receive Date: 20131008
  Receipt Date: 20131008
  Transmission Date: 20140711
  Serious: No
  Sender: FDA-Public Use
  Company Number: US-VERTEX PHARMACEUTICALS INC-AE-2012-007900

PATIENT
  Age: 30 Year
  Sex: Female

DRUGS (1)
  1. VX-770 [Suspect]
     Indication: CYSTIC FIBROSIS
     Dosage: 150 MG, BID
     Dates: start: 20120403

REACTIONS (8)
  - Feeling abnormal [Recovered/Resolved]
  - Sputum abnormal [Recovered/Resolved]
  - Bacterial test positive [Unknown]
  - Accidental overdose [Recovered/Resolved]
  - Malaise [Recovered/Resolved]
  - Drug dose omission [Recovered/Resolved]
  - Urinary tract infection [Recovered/Resolved]
  - Rhinorrhoea [Recovered/Resolved]
